FAERS Safety Report 4650373-X (Version None)
Quarter: 2005Q2

REPORT INFORMATION
  Report Type: 
  Country: None (occurrence: None)
  Receive Date: 20050429
  Receipt Date: 20050419
  Transmission Date: 20051028
  Serious: Yes (Hospitalization)
  Sender: FDA-Public Use
  Company Number: 2005PK00220

PATIENT
  Age: 17 Year
  Sex: Female
  Weight: 61 kg

DRUGS (5)
  1. SEROQUEL [Suspect]
     Indication: PSYCHOTIC DISORDER
     Dosage: 800 MG DAILY PO
     Route: 048
     Dates: start: 20040916, end: 20040930
  2. TAVOR [Concomitant]
  3. PROPRANOLOL [Concomitant]
  4. L-THYROXIN [Concomitant]
  5. FAVISTAN [Concomitant]

REACTIONS (1)
  - LEUKOPENIA [None]
